FAERS Safety Report 8542268-6 (Version None)
Quarter: 2012Q3

REPORT INFORMATION
  Report Type: 
  Country: None (occurrence: None)
  Receive Date: 20120726
  Receipt Date: 20120713
  Transmission Date: 20120928
  Serious: No
  Sender: FDA-Public Use
  Company Number: US-ASTRAZENECA-2012SE34019

PATIENT
  Age: 61 Year
  Sex: Male

DRUGS (2)
  1. NEXIUM [Suspect]
     Route: 048
  2. CRESTOR [Suspect]
     Indication: BLOOD CHOLESTEROL ABNORMAL
     Route: 048

REACTIONS (7)
  - ABASIA [None]
  - JOINT LOCK [None]
  - PAIN IN EXTREMITY [None]
  - HYPOAESTHESIA [None]
  - BLOOD CHOLESTEROL INCREASED [None]
  - THERAPY CESSATION [None]
  - INTENTIONAL DRUG MISUSE [None]
